FAERS Safety Report 17802944 (Version 1)
Quarter: 2020Q2

REPORT INFORMATION
  Report Type: Spontaneous
  Country: US (occurrence: US)
  Receive Date: 20200519
  Receipt Date: 20200519
  Transmission Date: 20200714
  Serious: Yes (Death)
  Sender: FDA-Public Use
  Company Number: None

PATIENT
  Age: 70 Year
  Sex: Male
  Weight: 95.5 kg

DRUGS (3)
  1. CONVALESCENT PLASMA [Concomitant]
     Dates: start: 20200516, end: 20200516
  2. HYDROXYCHLOROQUINE OR MATCHING PLACEBO (ORCHID TRIAL) [Concomitant]
     Dates: start: 20200505, end: 20200509
  3. REMDESIVIR. [Suspect]
     Active Substance: REMDESIVIR
     Indication: COVID-19 TREATMENT
     Route: 042
     Dates: start: 20200512, end: 20200515

REACTIONS (2)
  - Oxygen saturation decreased [None]
  - Renal failure [None]

NARRATIVE: CASE EVENT DATE: 20200518
